FAERS Safety Report 17054774 (Version 4)
Quarter: 2021Q4

REPORT INFORMATION
  Report Type: Spontaneous
  Country: None (occurrence: DE)
  Receive Date: 20191120
  Receipt Date: 20211008
  Transmission Date: 20220304
  Serious: Yes (Congenital Anomaly, Other)
  Sender: FDA-Public Use
  Company Number: None

PATIENT
  Age: 6 Week
  Sex: Female
  Weight: 3.4 kg

DRUGS (5)
  1. MONTELUKAST [Suspect]
     Active Substance: MONTELUKAST SODIUM
     Indication: Allergic cough
     Dosage: DAILY DOSE: 10 MG MILLIGRAM(S) EVERY DAY
     Route: 064
     Dates: start: 20130527, end: 20130621
  2. BUDESONIDE [Suspect]
     Active Substance: BUDESONIDE
     Indication: Allergic cough
     Dosage: 0.-41.3 GESTATIONAL WEEK
     Route: 064
     Dates: start: 20130527, end: 20140313
  3. ZYRTEC [Suspect]
     Active Substance: CETIRIZINE HYDROCHLORIDE
     Indication: Hypersensitivity
     Dosage: 10 MILLIGRAM, QD/10 MG, ONCE DAILY (QD)
     Route: 064
     Dates: start: 20130527, end: 20140313
  4. CETIRIZINE [Suspect]
     Active Substance: CETIRIZINE HYDROCHLORIDE
     Indication: Hypersensitivity
     Dosage: DAILY DOSE: 10 MG MILLIGRAM(S) EVERY DAY
     Route: 064
     Dates: start: 20130527, end: 20140313
  5. AMOXICILLIN TRIHYDRATE [Concomitant]
     Active Substance: AMOXICILLIN
     Indication: Pneumonia
     Dosage: 3000 MILLIGRAM, QD (1000 MG, 3X/DAY (TID))
     Route: 064
     Dates: start: 201401, end: 201401

REACTIONS (4)
  - Pulmonary artery stenosis congenital [Not Recovered/Not Resolved]
  - Atrial septal defect [Not Recovered/Not Resolved]
  - Pneumonia [Unknown]
  - Foetal exposure during pregnancy [Recovered/Resolved]

NARRATIVE: CASE EVENT DATE: 20130527
